FAERS Safety Report 8835025 (Version 1)
Quarter: 2012Q4

REPORT INFORMATION
  Report Type: 
  Country: US (occurrence: US)
  Receive Date: 20121011
  Receipt Date: 20121011
  Transmission Date: 20130627
  Serious: Yes (Life-Threatening, Hospitalization)
  Sender: FDA-Public Use
  Company Number: US-009507513-0910USA04049

PATIENT
  Age: 26 Month
  Sex: Female
  Weight: 13.2 kg

DRUGS (30)
  1. VORINOSTAT [Suspect]
     Indication: MEDULLOBLASTOMA
     Dosage: 520 mg, qd
     Route: 048
     Dates: start: 20091013, end: 20091016
  2. VORINOSTAT [Suspect]
     Dosage: 520 mg, qd
     Route: 048
     Dates: start: 20091106, end: 20091109
  3. VORINOSTAT [Suspect]
     Dosage: 520 mg, qd
     Route: 048
     Dates: start: 20091210, end: 20091213
  4. CISPLATIN [Suspect]
     Indication: MEDULLOBLASTOMA
     Dosage: 45 mg, ONCE
     Route: 041
     Dates: start: 20091016, end: 20091016
  5. CISPLATIN [Suspect]
     Dosage: 40 mg, ONCE
     Route: 041
     Dates: start: 20091109, end: 20091109
  6. CISPLATIN [Suspect]
     Dosage: 43 mg, ONCE
     Route: 041
     Dates: start: 20091213, end: 20091213
  7. CYCLOPHOSPHAMIDE [Suspect]
     Indication: MEDULLOBLASTOMA
     Dosage: 1520 mg, UNK
     Route: 041
     Dates: start: 20091018, end: 20091019
  8. CYCLOPHOSPHAMIDE [Suspect]
     Dosage: 1480 mg, UNK
     Route: 041
     Dates: start: 20091110, end: 20091111
  9. CYCLOPHOSPHAMIDE [Suspect]
     Dosage: 1476 mg, UNK
     Route: 041
     Dates: start: 20091214, end: 20091215
  10. ISOTRETINOIN [Suspect]
     Indication: MEDULLOBLASTOMA
     Dosage: 400 mg, UNK
     Route: 048
     Dates: start: 20091013, end: 20091016
  11. ISOTRETINOIN [Suspect]
     Dosage: 400 mg, UNK
     Route: 048
     Dates: start: 20091106, end: 20091109
  12. ISOTRETINOIN [Suspect]
     Dosage: 400 mg, UNK
     Route: 048
     Dates: start: 20091210, end: 20091213
  13. VINCRISTINE [Suspect]
     Indication: MEDULLOBLASTOMA
     Route: 041
     Dates: start: 20091016, end: 20091016
  14. VINCRISTINE [Suspect]
     Route: 041
     Dates: start: 20091023, end: 20091023
  15. VINCRISTINE [Suspect]
     Route: 041
     Dates: start: 20091109, end: 20091109
  16. VINCRISTINE [Suspect]
     Route: 041
     Dates: start: 20091116, end: 20091116
  17. VINCRISTINE [Suspect]
     Route: 041
     Dates: start: 20091123, end: 20091123
  18. VINCRISTINE [Suspect]
     Route: 041
     Dates: start: 20091213, end: 20091213
  19. VINCRISTINE [Suspect]
     Route: 041
     Dates: start: 20091220, end: 20091220
  20. VINCRISTINE [Suspect]
     Route: 041
     Dates: start: 20091228, end: 20091228
  21. ETOPOSIDE [Suspect]
     Indication: MEDULLOBLASTOMA
     Route: 041
     Dates: start: 20091016, end: 20091016
  22. ETOPOSIDE [Suspect]
     Route: 041
     Dates: start: 20091018, end: 20091019
  23. ETOPOSIDE [Suspect]
     Dosage: 90 mg, UNK
     Route: 041
     Dates: start: 20091109, end: 20091111
  24. ETOPOSIDE [Suspect]
     Dosage: 93 mg, UNK
     Route: 041
     Dates: start: 20091213, end: 20091215
  25. FILGRASTIM [Suspect]
     Indication: MEDULLOBLASTOMA
     Dosage: 585 mg, UNK
     Dates: end: 20091028
  26. MESNA [Suspect]
     Indication: MEDULLOBLASTOMA
     Dosage: 380 mg, UNK
     Dates: end: 20091019
  27. MESNA [Suspect]
     Dosage: 1520 mg, UNK
     Dates: end: 20091111
  28. MESNA [Suspect]
     Dosage: 1480 mg, UNK
     Dates: end: 20091215
  29. NEULASTA [Suspect]
     Indication: MEDULLOBLASTOMA
     Dosage: 1.2 mg, UNK
     Dates: end: 20091112
  30. NEULASTA [Suspect]
     Dosage: 1.2 mg, UNK
     Dates: end: 20091216

REACTIONS (7)
  - Mucosal inflammation [Recovered/Resolved]
  - White blood cell count decreased [Recovered/Resolved]
  - Neutrophil count decreased [Recovered/Resolved]
  - Platelet count decreased [Recovered/Resolved]
  - Dehydration [Recovered/Resolved]
  - Haemoglobin decreased [Recovering/Resolving]
  - Febrile neutropenia [Recovered/Resolved]
